FAERS Safety Report 11258375 (Version 1)
Quarter: 2015Q3

REPORT INFORMATION
  Report Type: Spontaneous
  Country: DK (occurrence: None)
  Receive Date: 20150708
  Receipt Date: 20150708
  Transmission Date: 20151125
  Serious: Yes (Hospitalization)
  Sender: FDA-Public Use
  Company Number: DK-2015VAL000431

PATIENT
  Age: 56 Year
  Sex: Female

DRUGS (10)
  1. AMLODIPINE [Concomitant]
     Active Substance: AMLODIPINE BESYLATE
  2. ABILIFY [Suspect]
     Active Substance: ARIPIPRAZOLE
     Indication: PRODUCT USED FOR UNKNOWN INDICATION
     Route: 048
     Dates: start: 20121218, end: 20130220
  3. BISOPROLOL (BISOPROLOL) [Concomitant]
     Active Substance: BISOPROLOL
  4. METOPROLOL TARTRATE (METOPROLOL TARTRATE) UNKNOWN [Suspect]
     Active Substance: METOPROLOL TARTRATE
     Indication: PRODUCT USED FOR UNKNOWN INDICATION
     Route: 048
     Dates: end: 20130405
  5. BIPERIDEN (BIPERIDEN) (BIPERIDIEN) [Concomitant]
     Active Substance: BIPERIDEN
  6. PANTOPRAZOLE (PANTOPRAZOLE) [Concomitant]
     Active Substance: PANTOPRAZOLE SODIUM
  7. ANTIHYPERTENSIVES [Concomitant]
     Active Substance: UNSPECIFIED INGREDIENT
  8. CITALOPRAM (CITALOPRAM) [Suspect]
     Active Substance: CITALOPRAM HYDROBROMIDE
     Indication: PRODUCT USED FOR UNKNOWN INDICATION
     Route: 048
     Dates: start: 20130202, end: 20130424
  9. LORAZEPAM (LORAZEPAM) [Concomitant]
     Active Substance: LORAZEPAM
  10. RAMIPRIL (RAMIPRIL) [Concomitant]
     Active Substance: RAMIPRIL

REACTIONS (4)
  - Drug level increased [None]
  - Drug interaction [None]
  - Restlessness [None]
  - Hypertension [None]

NARRATIVE: CASE EVENT DATE: 20130328
